FAERS Safety Report 18845607 (Version 1)
Quarter: 2021Q1

REPORT INFORMATION
  Report Type: Report from Study
  Country: US (occurrence: US)
  Receive Date: 20210203
  Receipt Date: 20210203
  Transmission Date: 20210419
  Serious: No
  Sender: FDA-Public Use
  Company Number: US-EXELIXIS-CABO-20029605

PATIENT
  Sex: Male

DRUGS (2)
  1. CABOMETYX [Suspect]
     Active Substance: CABOZANTINIB S-MALATE
     Indication: PROSTATE CANCER
     Dosage: 40 MG, QD AM NO FOOD 2 HRS PRIOR/1 HR AFTER
     Dates: start: 20200410
  2. KEYTRUDA [Suspect]
     Active Substance: PEMBROLIZUMAB
     Indication: PROSTATE CANCER
     Dosage: UNK, Q4WEEKS

REACTIONS (8)
  - Stomatitis [Unknown]
  - Asthenia [Unknown]
  - Prostatic specific antigen increased [Unknown]
  - Mobility decreased [Unknown]
  - Blood pressure increased [Recovered/Resolved]
  - Adverse drug reaction [Unknown]
  - Fatigue [Unknown]
  - Off label use [Unknown]
